FAERS Safety Report 17206176 (Version 1)
Quarter: 2019Q4

REPORT INFORMATION
  Report Type: Spontaneous
  Country: FR (occurrence: FR)
  Receive Date: 20191227
  Receipt Date: 20191227
  Transmission Date: 20200122
  Serious: Yes (Hospitalization)
  Sender: FDA-Public Use
  Company Number: FR-TEVA-2019-FR-1157535

PATIENT
  Age: 48 Year
  Sex: Female
  Weight: 65 kg

DRUGS (1)
  1. TAMOXIFENE BASE [Suspect]
     Active Substance: TAMOXIFEN
     Indication: INVASIVE DUCTAL BREAST CARCINOMA
     Dosage: 20 MG
     Route: 048
     Dates: start: 201701, end: 20191113

REACTIONS (2)
  - Cerebral venous thrombosis [Recovering/Resolving]
  - Ovarian vein thrombosis [Unknown]

NARRATIVE: CASE EVENT DATE: 20191110
